FAERS Safety Report 9516341 (Version 2)
Quarter: 2014Q1

REPORT INFORMATION
  Report Type: Spontaneous
  Country: US (occurrence: None)
  Receive Date: 20130305
  Receipt Date: 20140306
  Transmission Date: 20141002
  Serious: Yes (Disabling, Other)
  Sender: FDA-Public Use
  Company Number: 163-21880-12113355

PATIENT
  Age: 64 Year
  Sex: Male
  Weight: 84.8 kg

DRUGS (3)
  1. REVLIMID [Suspect]
     Indication: PLASMA CELL MYELOMA
     Dosage: 14 IN 21 D
     Route: 048
     Dates: start: 20120813, end: 20121220
  2. DECADRON (DEXAMETHASONE) [Concomitant]
  3. VELCADE (BORTEZOMIB) [Concomitant]

REACTIONS (4)
  - Decreased appetite [None]
  - Weight decreased [None]
  - Dysgeusia [None]
  - Fatigue [None]
